FAERS Safety Report 25415740 (Version 4)
Quarter: 2025Q4

REPORT INFORMATION
  Report Type: Spontaneous
  Country: CA (occurrence: CA)
  Receive Date: 20250610
  Receipt Date: 20251118
  Transmission Date: 20260117
  Serious: Yes (Life-Threatening, Hospitalization, Other)
  Sender: Haleon PLC
  Company Number: CA-002147023-NVSC2021CA012042

PATIENT
  Age: 75 Year
  Sex: Female
  Weight: 70 kg

DRUGS (200)
  1. DICLOFENAC SODIUM [Suspect]
     Active Substance: DICLOFENAC SODIUM
     Indication: Arthralgia
     Dosage: UNK
  2. DICLOFENAC SODIUM [Suspect]
     Active Substance: DICLOFENAC SODIUM
     Dosage: OCULAR USE
  3. DICLOFENAC SODIUM [Suspect]
     Active Substance: DICLOFENAC SODIUM
     Dosage: UNK (OCULAR USE), ROA: OPTHALMIC
  4. VITAMIN D3 [Suspect]
     Active Substance: CHOLECALCIFEROL
     Indication: Product used for unknown indication
     Dosage: UNK (TABLET)
  5. VITAMIN D3 [Suspect]
     Active Substance: CHOLECALCIFEROL
     Dosage: UNK
  6. VITAMIN D3 [Suspect]
     Active Substance: CHOLECALCIFEROL
     Dosage: UNK
  7. VITAMIN D3 [Suspect]
     Active Substance: CHOLECALCIFEROL
     Dosage: UNK
  8. VITAMIN D3 [Suspect]
     Active Substance: CHOLECALCIFEROL
     Dosage: UNK
  9. DICLOFENAC [Suspect]
     Active Substance: DICLOFENAC
     Indication: Arthralgia
     Dosage: ROA: OPHTHALMIC
  10. CHOLECALCIFEROL [Suspect]
     Active Substance: CHOLECALCIFEROL
     Indication: Product used for unknown indication
  11. CHOLECALCIFEROL [Suspect]
     Active Substance: CHOLECALCIFEROL
  12. CHOLECALCIFEROL [Suspect]
     Active Substance: CHOLECALCIFEROL
  13. CHOLECALCIFEROL [Suspect]
     Active Substance: CHOLECALCIFEROL
  14. CHOLECALCIFEROL [Suspect]
     Active Substance: CHOLECALCIFEROL
  15. CHOLECALCIFEROL [Suspect]
     Active Substance: CHOLECALCIFEROL
  16. CHOLECALCIFEROL [Suspect]
     Active Substance: CHOLECALCIFEROL
  17. CHOLECALCIFEROL [Suspect]
     Active Substance: CHOLECALCIFEROL
  18. NICOTINAMIDE [Suspect]
     Active Substance: NIACINAMIDE
     Indication: Product used for unknown indication
     Dosage: UNK
  19. PSEUDOEPHEDRINE HYDROCHLORIDE [Suspect]
     Active Substance: PSEUDOEPHEDRINE HYDROCHLORIDE
     Indication: Product used for unknown indication
  20. VITAMIN C [Suspect]
     Active Substance: ASCORBIC ACID
     Indication: Product used for unknown indication
     Dosage: UNK
  21. IPRATROPIUM [Suspect]
     Active Substance: IPRATROPIUM
     Indication: Rhinitis
     Dosage: UNK, ROUTE: UNKNOWN
  22. IPRATROPIUM [Suspect]
     Active Substance: IPRATROPIUM
     Indication: Product used for unknown indication
     Dosage: UNK
  23. IPRATROPIUM [Suspect]
     Active Substance: IPRATROPIUM
     Dosage: UNK
  24. IPRATROPIUM [Suspect]
     Active Substance: IPRATROPIUM
     Dosage: ROA: NASAL
  25. IPRATROPIUM [Suspect]
     Active Substance: IPRATROPIUM
     Dosage: UNK
  26. IPRATROPIUM [Suspect]
     Active Substance: IPRATROPIUM
     Dosage: ROA: NASAL
  27. IPRATROPIUM [Suspect]
     Active Substance: IPRATROPIUM
     Dosage: ROA: NASAL
  28. IPRATROPIUM [Suspect]
     Active Substance: IPRATROPIUM
     Dosage: ROA: NASAL
  29. PYRIDOXINE [Suspect]
     Active Substance: PYRIDOXINE
     Indication: Product used for unknown indication
     Dosage: UNK
  30. PYRIDOXINE [Suspect]
     Active Substance: PYRIDOXINE
     Indication: Rhinitis
     Dosage: UNK
  31. PYRIDOXINE [Suspect]
     Active Substance: PYRIDOXINE
     Dosage: ROA: NASAL
  32. PYRIDOXINE [Suspect]
     Active Substance: PYRIDOXINE
     Dosage: ROA: NASAL
  33. PYRIDOXINE HYDROCHLORIDE [Suspect]
     Active Substance: PYRIDOXINE HYDROCHLORIDE
     Indication: Product used for unknown indication
     Dosage: ROA: NASAL
  34. PYRIDOXINE HYDROCHLORIDE [Suspect]
     Active Substance: PYRIDOXINE HYDROCHLORIDE
     Indication: Rhinitis
     Dosage: UNK
  35. PYRIDOXINE HYDROCHLORIDE [Suspect]
     Active Substance: PYRIDOXINE HYDROCHLORIDE
     Dosage: UNK
  36. PYRIDOXINE HYDROCHLORIDE [Suspect]
     Active Substance: PYRIDOXINE HYDROCHLORIDE
     Dosage: ROA: NASAL
  37. NAPROXEN [Suspect]
     Active Substance: NAPROXEN
     Indication: Arthralgia
     Dosage: UNK, ROUTE: UNKNOWN
  38. NAPROXEN [Suspect]
     Active Substance: NAPROXEN
     Dosage: UNK (TABLET)
  39. NAPROXEN [Suspect]
     Active Substance: NAPROXEN
     Dosage: UNK (TABLET), ROUTE: UNKNOWN
  40. NAPROXEN [Suspect]
     Active Substance: NAPROXEN
  41. ESTRADIOL [Suspect]
     Active Substance: ESTRADIOL
     Indication: Menopausal symptoms
     Dosage: UNK
  42. ESTRADIOL [Suspect]
     Active Substance: ESTRADIOL
     Indication: Arthralgia
     Dosage: ROA: TRANSDERMAL USE
  43. TUMS ULTRA [Suspect]
     Active Substance: CALCIUM CARBONATE
     Indication: Product used for unknown indication
  44. IPRATROPIUM BROMIDE [Suspect]
     Active Substance: IPRATROPIUM BROMIDE
     Indication: Rhinitis
     Dosage: UNK, ROA: NASAL USE
  45. IPRATROPIUM BROMIDE [Suspect]
     Active Substance: IPRATROPIUM BROMIDE
     Indication: Product used for unknown indication
     Dosage: UNK, ROUTE: UNKNOWN
  46. IPRATROPIUM BROMIDE [Suspect]
     Active Substance: IPRATROPIUM BROMIDE
     Dosage: UNK, NASAL
  47. IPRATROPIUM BROMIDE [Suspect]
     Active Substance: IPRATROPIUM BROMIDE
     Dosage: UNK
  48. IPRATROPIUM BROMIDE [Suspect]
     Active Substance: IPRATROPIUM BROMIDE
     Dosage: UNK, ROUTE: UNKNOWN
  49. IPRATROPIUM BROMIDE [Suspect]
     Active Substance: IPRATROPIUM BROMIDE
     Dosage: UNK
  50. IPRATROPIUM BROMIDE [Suspect]
     Active Substance: IPRATROPIUM BROMIDE
     Dosage: ROA: NASAL
  51. IPRATROPIUM BROMIDE [Suspect]
     Active Substance: IPRATROPIUM BROMIDE
     Dosage: ROA: NASAL USE
  52. IPRATROPIUM BROMIDE [Suspect]
     Active Substance: IPRATROPIUM BROMIDE
     Dosage: ROA: NASAL
  53. AZOPT [Suspect]
     Active Substance: BRINZOLAMIDE
     Indication: Glaucoma
     Dosage: UNK (OPHTHALMIC), ROA: OCULAR USE, DOSE FORM: EYE DROPS, SUSPENSION
  54. AZOPT [Suspect]
     Active Substance: BRINZOLAMIDE
     Dosage: UNK (OPHTHALMIC), DOSE FORM: EYE DROPS, SUSPENSION, ROUTE: OCULAR
  55. AZOPT [Suspect]
     Active Substance: BRINZOLAMIDE
     Dosage: ROA: OCULAR USE,
  56. AZOPT [Suspect]
     Active Substance: BRINZOLAMIDE
     Dosage: UNK, DOSE FORM: EYE DROPS, SUSPENSION, ROUTE: OPHTHALMIC
  57. AZOPT [Suspect]
     Active Substance: BRINZOLAMIDE
     Dosage: UNK, DOSE FORM: EYE DROPS, SUSPENSION
  58. AZOPT [Suspect]
     Active Substance: BRINZOLAMIDE
     Dosage: DOSE FORM: EYE DROPS, SUSPENSION
  59. AZOPT [Suspect]
     Active Substance: BRINZOLAMIDE
     Dosage: DOSE FORM: EYE DROPS, SUSPENSION AND ROA: OPHTHALMIC
  60. ADVIL [Suspect]
     Active Substance: IBUPROFEN
     Indication: Arthralgia
  61. PREGABALIN [Suspect]
     Active Substance: PREGABALIN
     Indication: Arthralgia
     Dosage: UNK
  62. PREGABALIN [Suspect]
     Active Substance: PREGABALIN
  63. PREGABALIN [Suspect]
     Active Substance: PREGABALIN
     Dosage: UNK
  64. PREGABALIN [Suspect]
     Active Substance: PREGABALIN
  65. PREGABALIN [Suspect]
     Active Substance: PREGABALIN
     Dosage: 50 MG, ROUTE: UNKNOWN
  66. AZARGA [Suspect]
     Active Substance: BRINZOLAMIDE\TIMOLOL MALEATE
     Indication: Glaucoma
     Dosage: UNK (EYE DROPS), ROUTE: UNKNOWN
  67. AZARGA [Suspect]
     Active Substance: BRINZOLAMIDE\TIMOLOL MALEATE
     Dosage: DOSE FORM: EYE DROPS, SUSPENSION AND ROA: OPHTHALMIC
  68. AZARGA [Suspect]
     Active Substance: BRINZOLAMIDE\TIMOLOL MALEATE
     Dosage: UNK, ROUTE: OPHTHALMIC
  69. AZARGA [Suspect]
     Active Substance: BRINZOLAMIDE\TIMOLOL MALEATE
     Dosage: DOSE FORM: EYE DROPS, SUSPENSION AND ROA: OPHTHALMIC
  70. AZARGA [Suspect]
     Active Substance: BRINZOLAMIDE\TIMOLOL MALEATE
     Dosage: UNK (EYE DROPS, SUSPENSION), ROUTE: UNKNOWN
  71. AZARGA [Suspect]
     Active Substance: BRINZOLAMIDE\TIMOLOL MALEATE
     Dosage: DOSE FORM: EYE DROPS, SUSPENSION AND ROA: UNKNOWN
  72. AZARGA [Suspect]
     Active Substance: BRINZOLAMIDE\TIMOLOL MALEATE
     Dosage: UNK, ROUTE: OPHTHALMIC
  73. AZARGA [Suspect]
     Active Substance: BRINZOLAMIDE\TIMOLOL MALEATE
     Dosage: DOSE FORM: EYE DROPS, SUSPENSION AND ROA: OPHTHALMIC
  74. AZARGA [Suspect]
     Active Substance: BRINZOLAMIDE\TIMOLOL MALEATE
     Dosage: UNK (SUSPENSION), ROUTE: OPHTHALMIC
  75. AZARGA [Suspect]
     Active Substance: BRINZOLAMIDE\TIMOLOL MALEATE
     Dosage: DOSE FORM: EYE DROPS, SUSPENSION AND ROA: OPHTHALMIC
  76. AZARGA [Suspect]
     Active Substance: BRINZOLAMIDE\TIMOLOL MALEATE
     Dosage: DOSE FORM: EYE DROPS, SUSPENSION AND ROA: INTRAOCULAR
  77. AZARGA [Suspect]
     Active Substance: BRINZOLAMIDE\TIMOLOL MALEATE
     Dosage: DOSE FORM: EYE DROPS, SUSPENSION
  78. AZARGA [Suspect]
     Active Substance: BRINZOLAMIDE\TIMOLOL MALEATE
     Dosage: DOSE FORM: EYE DROPS, SUSPENSION
  79. ACETAMINOPHEN [Suspect]
     Active Substance: ACETAMINOPHEN
     Indication: Product used for unknown indication
  80. ATORVASTATIN CALCIUM [Suspect]
     Active Substance: ATORVASTATIN CALCIUM
     Indication: Dyslipidaemia
     Dosage: UNK
  81. ATORVASTATIN CALCIUM [Suspect]
     Active Substance: ATORVASTATIN CALCIUM
     Dosage: DOSE FORM: FILM-COATED TABLET
  82. ATORVASTATIN CALCIUM [Suspect]
     Active Substance: ATORVASTATIN CALCIUM
     Dosage: UNK
  83. ATORVASTATIN CALCIUM [Suspect]
     Active Substance: ATORVASTATIN CALCIUM
  84. TELMISARTAN [Suspect]
     Active Substance: TELMISARTAN
     Indication: Hypertension
     Dosage: UNK OPHTHALMIC, ROUTE: OCULAR USE
  85. TELMISARTAN [Suspect]
     Active Substance: TELMISARTAN
     Indication: Glaucoma
     Dosage: UNK OPHTHALMIC, ROA: OCULAR USE
  86. TELMISARTAN [Suspect]
     Active Substance: TELMISARTAN
     Indication: Product used for unknown indication
     Dosage: UNK
  87. TELMISARTAN [Suspect]
     Active Substance: TELMISARTAN
  88. TELMISARTAN [Suspect]
     Active Substance: TELMISARTAN
     Dosage: UNK
  89. TELMISARTAN [Suspect]
     Active Substance: TELMISARTAN
     Dosage: UNK
  90. TELMISARTAN [Suspect]
     Active Substance: TELMISARTAN
     Dosage: UNK
  91. TELMISARTAN [Suspect]
     Active Substance: TELMISARTAN
  92. TELMISARTAN [Suspect]
     Active Substance: TELMISARTAN
     Dosage: UNK
  93. TELMISARTAN [Suspect]
     Active Substance: TELMISARTAN
     Dosage: UNK
  94. TELMISARTAN [Suspect]
     Active Substance: TELMISARTAN
     Dosage: UNK OPHTHALMIC, ROUTE: OCULAR USE
  95. TELMISARTAN [Suspect]
     Active Substance: TELMISARTAN
  96. TELMISARTAN [Suspect]
     Active Substance: TELMISARTAN
     Dosage: UNK
  97. TELMISARTAN [Suspect]
     Active Substance: TELMISARTAN
  98. TELMISARTAN [Suspect]
     Active Substance: TELMISARTAN
     Dosage: UNK OPHTHALMIC, ROA: OCULAR USE
  99. TELMISARTAN [Suspect]
     Active Substance: TELMISARTAN
     Dosage: OCULAR USE
  100. TELMISARTAN [Suspect]
     Active Substance: TELMISARTAN
     Dosage: UNK
  101. TELMISARTAN [Suspect]
     Active Substance: TELMISARTAN
     Dosage: OCULAR USE
  102. LATANOPROST [Suspect]
     Active Substance: LATANOPROST
     Indication: Glaucoma
     Dosage: UNK(OPHTHALMIC), DOSE FORM: EAR/EYE DROPS, SOLUTION
  103. LATANOPROST [Suspect]
     Active Substance: LATANOPROST
     Dosage: UNK, ROUTE: UNKNOWN, DOSE FORM: EAR/EYE DROPS, SOLUTION
  104. LATANOPROST [Suspect]
     Active Substance: LATANOPROST
     Dosage: OCULAR USE, DOSE FORM: EAR/EYE DROPS, SOLUTION
  105. LATANOPROST [Suspect]
     Active Substance: LATANOPROST
     Dosage: UNK, DOSE FORM: EAR/EYE DROPS, SOLUTION, ROUTE: OPHTHALMIC
  106. LATANOPROST [Suspect]
     Active Substance: LATANOPROST
     Dosage: UNK (OPHTHALMIC), DOSE FORM: EAR/EYE DROPS, SOLUTION
  107. LATANOPROST [Suspect]
     Active Substance: LATANOPROST
     Dosage: UNK, DOSE FORM: EAR/EYE DROPS, SOLUTION, ROUTE: OPHTHALMIC
  108. LATANOPROST [Suspect]
     Active Substance: LATANOPROST
     Dosage: OCULAR USE, DOSE FORM: EAR/EYE DROPS, SOLUTION
  109. LATANOPROST [Suspect]
     Active Substance: LATANOPROST
     Dosage: UNK, DOSE FORM: EAR/EYE DROPS, SOLUTION
  110. LATANOPROST [Suspect]
     Active Substance: LATANOPROST
     Dosage: DOSE FORM: EAR/EYE DROPS, SOLUTION
  111. LATANOPROST [Suspect]
     Active Substance: LATANOPROST
     Dosage: DOSE FORM: EAR/EYE DROPS, SOLUTION
  112. AMOXICILLIN TRIHYDRATE [Suspect]
     Active Substance: AMOXICILLIN
     Indication: Sinusitis
     Dosage: UNK
  113. ADVIL [Suspect]
     Active Substance: IBUPROFEN
     Indication: Arthralgia
     Dosage: UNK, ROUTE: UNKNOWN
  114. BRINZOLAMIDE\TIMOLOL MALEATE [Suspect]
     Active Substance: BRINZOLAMIDE\TIMOLOL MALEATE
     Indication: Glaucoma
  115. BRINZOLAMIDE\TIMOLOL MALEATE [Suspect]
     Active Substance: BRINZOLAMIDE\TIMOLOL MALEATE
     Dosage: UNK (EYE DROPS)
  116. CLONAZEPAM [Suspect]
     Active Substance: CLONAZEPAM
     Indication: Product used for unknown indication
     Dosage: UNK (TABLET)
  117. CLONAZEPAM [Suspect]
     Active Substance: CLONAZEPAM
  118. ESTRADIOL [Suspect]
     Active Substance: ESTRADIOL
     Indication: Product used for unknown indication
     Dosage: UNK (PATCH), DOSE FORM: PATCH, ROUTE: TRANSDERMAL
  119. ESTRADIOL [Suspect]
     Active Substance: ESTRADIOL
     Dosage: UNK (PATCH)
  120. ZOPICLONE [Suspect]
     Active Substance: ZOPICLONE
     Indication: Insomnia
     Dosage: UNK
  121. ZOPICLONE [Suspect]
     Active Substance: ZOPICLONE
     Indication: Sinusitis
  122. ZOPICLONE [Suspect]
     Active Substance: ZOPICLONE
     Indication: Dyslipidaemia
     Dosage: UNK
  123. ZOPICLONE [Suspect]
     Active Substance: ZOPICLONE
     Indication: Arthralgia
  124. ZOPICLONE [Suspect]
     Active Substance: ZOPICLONE
     Dosage: UNK
  125. ZOPICLONE [Suspect]
     Active Substance: ZOPICLONE
  126. ZOPICLONE [Suspect]
     Active Substance: ZOPICLONE
     Dosage: UNK
  127. ZOPICLONE [Suspect]
     Active Substance: ZOPICLONE
  128. ZOPICLONE [Suspect]
     Active Substance: ZOPICLONE
     Dosage: UNK
  129. ZOPICLONE [Suspect]
     Active Substance: ZOPICLONE
  130. ZOPICLONE [Suspect]
     Active Substance: ZOPICLONE
     Dosage: 100 MG, ROUTE: UNKNOWN
  131. ZOPICLONE [Suspect]
     Active Substance: ZOPICLONE
     Dosage: 100 MG, ROUTE: UNKNOWN
  132. ZOPICLONE [Suspect]
     Active Substance: ZOPICLONE
     Dosage: 100 MG, ROUTE: UNKNOWN
  133. ZOPICLONE [Suspect]
     Active Substance: ZOPICLONE
     Dosage: 100 MG, ROUTE: UNKNOWN
  134. ZOPICLONE [Suspect]
     Active Substance: ZOPICLONE
     Dosage: UNK (TABLET)
  135. ZOPICLONE [Suspect]
     Active Substance: ZOPICLONE
  136. ZOPICLONE [Suspect]
     Active Substance: ZOPICLONE
     Dosage: UNK
  137. ZOPICLONE [Suspect]
     Active Substance: ZOPICLONE
  138. ZOPICLONE [Suspect]
     Active Substance: ZOPICLONE
     Dosage: UNK
  139. ZOPICLONE [Suspect]
     Active Substance: ZOPICLONE
  140. ZOPICLONE [Suspect]
     Active Substance: ZOPICLONE
     Dosage: UNK
  141. ZOPICLONE [Suspect]
     Active Substance: ZOPICLONE
  142. BRINZOLAMIDE\TIMOLOL MALEATE [Suspect]
     Active Substance: BRINZOLAMIDE\TIMOLOL MALEATE
     Indication: Glaucoma
     Dosage: UNK
  143. BRINZOLAMIDE\TIMOLOL MALEATE [Suspect]
     Active Substance: BRINZOLAMIDE\TIMOLOL MALEATE
  144. BRINZOLAMIDE\TIMOLOL MALEATE [Suspect]
     Active Substance: BRINZOLAMIDE\TIMOLOL MALEATE
     Dosage: UNK
  145. BRINZOLAMIDE\TIMOLOL MALEATE [Suspect]
     Active Substance: BRINZOLAMIDE\TIMOLOL MALEATE
  146. BRINZOLAMIDE\TIMOLOL MALEATE [Suspect]
     Active Substance: BRINZOLAMIDE\TIMOLOL MALEATE
     Dosage: UNK
  147. BRINZOLAMIDE\TIMOLOL MALEATE [Suspect]
     Active Substance: BRINZOLAMIDE\TIMOLOL MALEATE
     Dosage: OCULAR USE
  148. BRINZOLAMIDE\TIMOLOL MALEATE [Suspect]
     Active Substance: BRINZOLAMIDE\TIMOLOL MALEATE
     Dosage: UNK
  149. BRINZOLAMIDE\TIMOLOL MALEATE [Suspect]
     Active Substance: BRINZOLAMIDE\TIMOLOL MALEATE
  150. BRINZOLAMIDE\TIMOLOL MALEATE [Suspect]
     Active Substance: BRINZOLAMIDE\TIMOLOL MALEATE
     Dosage: UNK (OPHTHALMIC), OCULAR USE
  151. BRINZOLAMIDE\TIMOLOL MALEATE [Suspect]
     Active Substance: BRINZOLAMIDE\TIMOLOL MALEATE
  152. BRINZOLAMIDE\TIMOLOL MALEATE [Suspect]
     Active Substance: BRINZOLAMIDE\TIMOLOL MALEATE
     Dosage: UNK
  153. BRINZOLAMIDE\TIMOLOL MALEATE [Suspect]
     Active Substance: BRINZOLAMIDE\TIMOLOL MALEATE
  154. BRINZOLAMIDE\TIMOLOL MALEATE [Suspect]
     Active Substance: BRINZOLAMIDE\TIMOLOL MALEATE
     Dosage: OCULAR USE
  155. BRINZOLAMIDE\TIMOLOL MALEATE [Suspect]
     Active Substance: BRINZOLAMIDE\TIMOLOL MALEATE
  156. BRINZOLAMIDE\TIMOLOL MALEATE [Suspect]
     Active Substance: BRINZOLAMIDE\TIMOLOL MALEATE
  157. GABAPENTIN [Suspect]
     Active Substance: GABAPENTIN
     Indication: Arthralgia
     Dosage: 100 MG, ROUTE: UNKNOWN
  158. GABAPENTIN [Suspect]
     Active Substance: GABAPENTIN
     Dosage: 100 MG, ROUTE: UNKNOWN
  159. CHOLECALCIFEROL [Suspect]
     Active Substance: CHOLECALCIFEROL
     Indication: Product used for unknown indication
     Dosage: UNK
  160. CHOLECALCIFEROL [Suspect]
     Active Substance: CHOLECALCIFEROL
     Dosage: UNK
  161. CHOLECALCIFEROL [Suspect]
     Active Substance: CHOLECALCIFEROL
     Dosage: UNK
  162. CLONAZEPAM [Suspect]
     Active Substance: CLONAZEPAM
     Indication: Product used for unknown indication
     Dosage: UNK (TABLET)
  163. CLONAZEPAM [Suspect]
     Active Substance: CLONAZEPAM
  164. BRINZOLAMIDE [Suspect]
     Active Substance: BRINZOLAMIDE
     Indication: Glaucoma
     Dosage: UNK
  165. BRINZOLAMIDE [Suspect]
     Active Substance: BRINZOLAMIDE
     Dosage: UNK, ROUTE: OCULAR USE, DOSE FORM: EYE DROPS, SUSPENSION
  166. BRINZOLAMIDE [Suspect]
     Active Substance: BRINZOLAMIDE
     Dosage: DOSE FORM: EYE DROPS, SUSPENSION
  167. BRINZOLAMIDE [Suspect]
     Active Substance: BRINZOLAMIDE
     Dosage: UNK, OCULAR USE, DOSE FORM: EYE DROPS, SUSPENSION
  168. BRINZOLAMIDE [Suspect]
     Active Substance: BRINZOLAMIDE
     Dosage: OCULAR USE, DOSE FORM: EYE DROPS, SUSPENSION
  169. AMOXICILLIN [Suspect]
     Active Substance: AMOXICILLIN
     Indication: Sinusitis
     Dosage: UNK
  170. DEXPANTHENOL [Suspect]
     Active Substance: DEXPANTHENOL
     Indication: Product used for unknown indication
  171. ERGOCALCIFEROL [Suspect]
     Active Substance: ERGOCALCIFEROL
     Indication: Product used for unknown indication
     Dosage: UNK
  172. VITAMIN A [Suspect]
     Active Substance: VITAMIN A
     Indication: Product used for unknown indication
     Dosage: UNK
  173. RIBOFLAVIN [Suspect]
     Active Substance: RIBOFLAVIN
     Indication: Product used for unknown indication
     Dosage: UNK
  174. ATORVASTATIN [Suspect]
     Active Substance: ATORVASTATIN
     Indication: Dyslipidaemia
     Dosage: UNK
  175. THIAMINE HYDROCHLORIDE [Suspect]
     Active Substance: THIAMINE HYDROCHLORIDE
     Indication: Product used for unknown indication
     Dosage: UNK
  176. VITAMINS [Suspect]
     Active Substance: VITAMINS
     Indication: Product used for unknown indication
     Dosage: UNK
  177. FOLIC ACID [Suspect]
     Active Substance: FOLIC ACID
     Indication: Product used for unknown indication
     Dosage: UNK, ROUTE: UNKNOWN
  178. PSEUDOEPHEDRINE [Suspect]
     Active Substance: PSEUDOEPHEDRINE
     Indication: Product used for unknown indication
     Dosage: UNKNOWN, PATIENT ROA: UNKNOWN
  179. CHLORPHENIRAMINE MALEATE\PSEUDOEPHEDRINE HYDROCHLORIDE [Suspect]
     Active Substance: CHLORPHENIRAMINE MALEATE\PSEUDOEPHEDRINE HYDROCHLORIDE
     Indication: Product used for unknown indication
     Dosage: UNKNOWN, PATIENT ROA: UNKNOWN.
  180. VITAMIN B6 [Suspect]
     Active Substance: PYRIDOXINE HYDROCHLORIDE
     Indication: Product used for unknown indication
     Dosage: UNK
  181. CALCIUM CARBONATE\DIMETHICONE [Suspect]
     Active Substance: CALCIUM CARBONATE\DIMETHICONE
     Indication: Product used for unknown indication
     Dosage: UNK
  182. ATORVASTATIN [Concomitant]
     Active Substance: ATORVASTATIN
     Indication: Dyslipidaemia
     Dosage: UNK
  183. ATORVASTATIN [Concomitant]
     Active Substance: ATORVASTATIN
     Indication: Product used for unknown indication
     Dosage: UNK
  184. ATORVASTATIN [Concomitant]
     Active Substance: ATORVASTATIN
     Dosage: UNK (TABLET)
  185. ACETAMINOPHEN\PSEUDOEPHEDRINE HYDROCHLORIDE [Concomitant]
     Active Substance: ACETAMINOPHEN\PSEUDOEPHEDRINE HYDROCHLORIDE
     Indication: Product used for unknown indication
     Dosage: UNK
  186. ACETAMINOPHEN\PSEUDOEPHEDRINE HYDROCHLORIDE [Concomitant]
     Active Substance: ACETAMINOPHEN\PSEUDOEPHEDRINE HYDROCHLORIDE
     Dosage: UNK
  187. ACETAMINOPHEN\PSEUDOEPHEDRINE HYDROCHLORIDE [Concomitant]
     Active Substance: ACETAMINOPHEN\PSEUDOEPHEDRINE HYDROCHLORIDE
     Dosage: UNK, ROUTE: UNKNOWN
  188. ACETAMINOPHEN\PSEUDOEPHEDRINE HYDROCHLORIDE [Concomitant]
     Active Substance: ACETAMINOPHEN\PSEUDOEPHEDRINE HYDROCHLORIDE
     Dosage: UNK
  189. ACETAMINOPHEN\PSEUDOEPHEDRINE HYDROCHLORIDE [Concomitant]
     Active Substance: ACETAMINOPHEN\PSEUDOEPHEDRINE HYDROCHLORIDE
     Dosage: UNK, ROUTE: UNKNOWN
  190. ACETAMINOPHEN\PSEUDOEPHEDRINE HYDROCHLORIDE [Concomitant]
     Active Substance: ACETAMINOPHEN\PSEUDOEPHEDRINE HYDROCHLORIDE
     Dosage: UNK
  191. VITAMIN B6 [Concomitant]
     Active Substance: PYRIDOXINE HYDROCHLORIDE
     Indication: Product used for unknown indication
     Dosage: UNK
  192. VITAMIN B6 [Concomitant]
     Active Substance: PYRIDOXINE HYDROCHLORIDE
     Dosage: UNK (F)
  193. ATORVASTATIN CALCIUM [Concomitant]
     Active Substance: ATORVASTATIN CALCIUM
     Indication: Product used for unknown indication
     Dosage: UNK
  194. ATORVASTATIN CALCIUM [Concomitant]
     Active Substance: ATORVASTATIN CALCIUM
     Indication: Dyslipidaemia
  195. ATORVASTATIN CALCIUM [Concomitant]
     Active Substance: ATORVASTATIN CALCIUM
     Dosage: UNK
  196. ATORVASTATIN CALCIUM [Concomitant]
     Active Substance: ATORVASTATIN CALCIUM
     Dosage: UNK (TABLET)
  197. ACETAMINOPHEN [Concomitant]
     Active Substance: ACETAMINOPHEN
     Indication: Product used for unknown indication
     Dosage: UNK
  198. CHOLECALCIFEROL [Concomitant]
     Active Substance: CHOLECALCIFEROL
     Indication: Product used for unknown indication
     Dosage: UNK
  199. IPRATROPIUM [Concomitant]
     Active Substance: IPRATROPIUM
     Indication: Product used for unknown indication
     Dosage: UNK (INTRA-NASAL)
  200. IPRATROPIUM [Concomitant]
     Active Substance: IPRATROPIUM
     Dosage: UNK

REACTIONS (7)
  - Toxic epidermal necrolysis [Unknown]
  - Epidermal necrosis [Unknown]
  - Off label use [Recovered/Resolved]
  - Haemoglobin decreased [Unknown]
  - Nikolsky^s sign test [Recovered/Resolved]
  - Rash erythematous [Recovered/Resolved]
  - Rash papular [Unknown]
